FAERS Safety Report 20505578 (Version 9)
Quarter: 2022Q3

REPORT INFORMATION
  Report Type: Spontaneous
  Country: US (occurrence: US)
  Receive Date: 20220223
  Receipt Date: 20220928
  Transmission Date: 20221027
  Serious: Yes (Other)
  Sender: FDA-Public Use
  Company Number: US-SA-SAC20220217000393

PATIENT
  Age: 69 Year
  Sex: Female

DRUGS (2)
  1. DUPIXENT [Suspect]
     Active Substance: DUPILUMAB
     Indication: Dermatitis atopic
     Dosage: 600 MG, 1X
     Route: 058
     Dates: start: 202202, end: 202202
  2. DUPIXENT [Suspect]
     Active Substance: DUPILUMAB
     Dosage: 300 MG, QOW
     Route: 058
     Dates: start: 2022, end: 2022

REACTIONS (10)
  - Pneumonia [Unknown]
  - Bronchitis [Unknown]
  - Urinary tract infection [Unknown]
  - Abdominal pain upper [Unknown]
  - Back pain [Unknown]
  - Pruritus [Unknown]
  - Illness [Unknown]
  - Rib fracture [Unknown]
  - Fall [Unknown]
  - Product dose omission in error [Unknown]

NARRATIVE: CASE EVENT DATE: 20220101
